FAERS Safety Report 9688722 (Version 1)
Quarter: 2013Q4

REPORT INFORMATION
  Report Type: Report from Study
  Country: JP (occurrence: JP)
  Receive Date: 20131114
  Receipt Date: 20131114
  Transmission Date: 20140711
  Serious: Yes (Death)
  Sender: FDA-Public Use
  Company Number: JP-SA-2013SA116265

PATIENT
  Age: 71 Year
  Sex: Male

DRUGS (4)
  1. PREDNISOLONE [Suspect]
     Indication: PROSTATE CANCER
     Dosage: GIVEN ON DAY 1-21 EVERY 3 WEEKS.
     Route: 048
  2. DOCETAXEL [Suspect]
     Indication: PROSTATE CANCER
     Dosage: RECEIVED ON DAY 2.
     Route: 042
  3. ESTRAMUSTINE [Suspect]
     Indication: PROSTATE CANCER
     Dosage: GIVEN FOR DAYS 1-5 AND 8-12 EVERY 3 WEEKS.
     Route: 048
  4. DEXAMETHASONE [Concomitant]
     Indication: PREMEDICATION
     Route: 042

REACTIONS (1)
  - Febrile neutropenia [Fatal]
